FAERS Safety Report 19433270 (Version 1)
Quarter: 2021Q2

REPORT INFORMATION
  Report Type: Spontaneous
  Country: ID (occurrence: ID)
  Receive Date: 20210617
  Receipt Date: 20210617
  Transmission Date: 20210717
  Serious: Yes (Death, Other)
  Sender: FDA-Public Use
  Company Number: ID-SA-2021SA201042

PATIENT
  Age: 33 Year
  Sex: Male

DRUGS (7)
  1. OMEPRAZOLE. [Concomitant]
     Active Substance: OMEPRAZOLE
     Dosage: 40 MG, BID
     Route: 065
  2. LEVOFLOXACIN. [Concomitant]
     Active Substance: LEVOFLOXACIN
     Dosage: 750 MG, QH
     Route: 065
  3. VITAMIN C [Concomitant]
     Active Substance: ASCORBIC ACID
     Dosage: 1 DF, Q12H
     Route: 065
  4. APIDRA [Suspect]
     Active Substance: INSULIN GLULISINE
     Dosage: APIDRA SYRINGE PUMP 4 CC/HOUR. APIDRA INJECTION 4?4?4 ON EACH NASOGASTRIC TUBE 1,3,5. APIDRA INJECTI
     Route: 051
  5. CEFTRIAXONE. [Concomitant]
     Active Substance: CEFTRIAXONE
     Dosage: UNK
     Route: 065
  6. DEXAMETHASONE. [Concomitant]
     Active Substance: DEXAMETHASONE
     Dosage: 1 AMP/12 HOURS
     Route: 065
  7. REMDESIVIR. [Concomitant]
     Active Substance: REMDESIVIR
     Dosage: 200 MG (DAY?1) AND 100 MG/DAY (DAY?2 TO DAY?7)
     Route: 065

REACTIONS (4)
  - Pulmonary embolism [Fatal]
  - Oxygen saturation decreased [Unknown]
  - Altered state of consciousness [Unknown]
  - Respiratory failure [Fatal]
